FAERS Safety Report 8505782-5 (Version None)
Quarter: 2012Q3

REPORT INFORMATION
  Report Type: 
  Country: None (occurrence: None)
  Receive Date: 20120712
  Receipt Date: 20120706
  Transmission Date: 20120928
  Serious: Yes (Hospitalization)
  Sender: FDA-Public Use
  Company Number: US-JNJFOC-20120519343

PATIENT
  Sex: Female
  Weight: 63.05 kg

DRUGS (9)
  1. SIMVASTATIN [Concomitant]
     Indication: BLOOD CHOLESTEROL
     Route: 065
  2. ATIVAN [Concomitant]
     Indication: ANXIETY
     Route: 065
     Dates: start: 20111101
  3. PANCREAZE [Suspect]
     Dosage: 16800 UNITS/CAPSULE
     Route: 048
     Dates: start: 20110101, end: 20120101
  4. PANCREAZE [Suspect]
     Indication: DYSPEPSIA
     Dosage: 16800 USP UNITS/ CAPSULE  6 CAPSULES (2 IN AM, 2 IN NOON AND 2 AT DINNER TIME)
     Route: 048
     Dates: start: 20120518
  5. PANCREAZE [Suspect]
     Dosage: 16800 USP UNITS/ CAPSULE  6 CAPSULES (2 IN AM, 2 IN NOON AND 2 AT DINNER TIME)
     Route: 048
     Dates: start: 20120101, end: 20120501
  6. OMEPRAZOLE [Concomitant]
     Indication: ANTACID THERAPY
     Route: 048
     Dates: start: 20120101
  7. BETA-BLOCKER (NAME UNSPECIFIED) [Suspect]
     Indication: PRODUCT USED FOR UNKNOWN INDICATION
     Route: 065
  8. ALL OTHER THERAPEUTIC PRODUCTS [Concomitant]
     Indication: MEDICAL DIET
     Route: 048
  9. AVAPRO [Concomitant]
     Indication: HYPERTENSION
     Route: 065
     Dates: start: 20120501

REACTIONS (7)
  - MALAISE [None]
  - HEART RATE DECREASED [None]
  - PAIN [None]
  - DIARRHOEA [None]
  - EXPIRED DRUG ADMINISTERED [None]
  - FLATULENCE [None]
  - ABDOMINAL PAIN UPPER [None]
